FAERS Safety Report 22165034 (Version 2)
Quarter: 2023Q2

REPORT INFORMATION
  Report Type: Report from Study
  Country: NO (occurrence: None)
  Receive Date: 20230403
  Receipt Date: 20230406
  Transmission Date: 20230722
  Serious: Yes (Hospitalization)
  Sender: FDA-Public Use
  Company Number: NO-ROCHE-3264224

PATIENT
  Age: 74 Year
  Sex: Male

DRUGS (15)
  1. OBINUTUZUMAB [Suspect]
     Active Substance: OBINUTUZUMAB
     Indication: Chronic lymphocytic leukaemia
     Dosage: THE LAST DOSE OF OBINUTUZUMAB WAS 1000 MG ON 20/DEC/2022?THE LAST DOSE OF OBINUTUZUMAB WAS 1000 MG O
     Route: 042
     Dates: start: 20220928
  2. VENETOCLAX [Suspect]
     Active Substance: VENETOCLAX
     Indication: Chronic lymphocytic leukaemia
     Dosage: THE LAST DOSE OF VENETOCLAX 400 MG ON 11/JAN/2023?THE LAST DOSE OF VENETOCLAX 400 MG ON 25/MAR/2023.
     Route: 048
     Dates: start: 20221018
  3. DIOVAN [Concomitant]
     Active Substance: VALSARTAN
  4. GLUCOPHAGE [Concomitant]
     Active Substance: METFORMIN HYDROCHLORIDE
  5. SOTALOL [Concomitant]
     Active Substance: SOTALOL
  6. TAMSULOSIN HYDROCHLORIDE [Concomitant]
     Active Substance: TAMSULOSIN HYDROCHLORIDE
  7. AMARYL [Concomitant]
     Active Substance: GLIMEPIRIDE
  8. ELIQUIS [Concomitant]
     Active Substance: APIXABAN
  9. NEXIUM [Concomitant]
     Active Substance: ESOMEPRAZOLE MAGNESIUM
  10. OZEMPIC [Concomitant]
     Active Substance: SEMAGLUTIDE
  11. DAPAGLIFLOZIN [Concomitant]
     Active Substance: DAPAGLIFLOZIN
  12. INSULIN NOS [Concomitant]
     Active Substance: INSULIN NOS
     Route: 065
     Dates: start: 20230327
  13. ZOLPIDEM [Concomitant]
     Active Substance: ZOLPIDEM TARTRATE
     Route: 065
     Dates: start: 20230326
  14. DALTEPARIN [Concomitant]
     Active Substance: DALTEPARIN
     Route: 065
     Dates: start: 20230327
  15. DALTEPARIN [Concomitant]
     Active Substance: DALTEPARIN
     Dosage: 7500 L
     Route: 065
     Dates: start: 20230326, end: 20230326

REACTIONS (2)
  - Dysphagia [Recovered/Resolved]
  - Gastritis [Recovered/Resolved]

NARRATIVE: CASE EVENT DATE: 20230112
